FAERS Safety Report 5828476-3 (Version None)
Quarter: 2008Q3

REPORT INFORMATION
  Report Type: 
  Country: None (occurrence: None)
  Receive Date: 20080731
  Receipt Date: 20080723
  Transmission Date: 20090109
  Serious: Yes (Hospitalization)
  Sender: FDA-Public Use
  Company Number: FR-WATSON-2008-04482

PATIENT
  Age: 88 Year
  Sex: Female

DRUGS (1)
  1. AFEDITAB (WATSON LABORATORIES) [Suspect]
     Indication: HYPERTENSION
     Dosage: UNK
     Route: 065

REACTIONS (1)
  - BEZOAR [None]
